FAERS Safety Report 9078341 (Version 1)
Quarter: 2013Q1

REPORT INFORMATION
  Report Type: Spontaneous
  Country: US (occurrence: US)
  Receive Date: 20130130
  Receipt Date: 20130130
  Transmission Date: 20140127
  Serious: Yes (Other)
  Sender: FDA-Public Use
  Company Number: US-ROCHE-1037651

PATIENT
  Age: 33 Year
  Sex: Female
  Weight: 61.29 kg

DRUGS (3)
  1. ACCUTANE [Suspect]
     Indication: ACNE
     Dosage: FOR 8 MONTHS OR YEAR
     Route: 065
     Dates: start: 1994
  2. ACCUTANE [Suspect]
     Route: 065
     Dates: start: 200201, end: 200203
  3. ACCUTANE [Suspect]
     Dosage: FOR FEW WEEKS
     Route: 065
     Dates: start: 200401

REACTIONS (8)
  - Colitis ulcerative [Unknown]
  - Crohn^s disease [Unknown]
  - Inflammatory bowel disease [Unknown]
  - Depression [Unknown]
  - Mental disorder [Unknown]
  - Irritable bowel syndrome [Unknown]
  - Lip dry [Unknown]
  - Epistaxis [Unknown]
